FAERS Safety Report 18935173 (Version 6)
Quarter: 2023Q4

REPORT INFORMATION
  Report Type: Spontaneous
  Country: US (occurrence: US)
  Receive Date: 20210224
  Receipt Date: 20231020
  Transmission Date: 20240110
  Serious: Yes (Other)
  Sender: FDA-Public Use
  Company Number: US-PFIZER INC-2021160936

PATIENT
  Age: 53 Year
  Sex: Female

DRUGS (1)
  1. PREMPRO [Suspect]
     Active Substance: ESTROGENS, CONJUGATED\MEDROXYPROGESTERONE ACETATE
     Dosage: UNK

REACTIONS (8)
  - Blindness [Unknown]
  - Visual impairment [Unknown]
  - Cough [Unknown]
  - Malaise [Unknown]
  - Hypersensitivity [Unknown]
  - Hypersomnia [Unknown]
  - Illness [Unknown]
  - Hot flush [Unknown]
